FAERS Safety Report 24948347 (Version 1)
Quarter: 2025Q1

REPORT INFORMATION
  Report Type: Report from Study
  Country: CA (occurrence: CA)
  Receive Date: 20250210
  Receipt Date: 20250210
  Transmission Date: 20250408
  Serious: Yes (Death)
  Sender: ABBVIE
  Company Number: CA-ABBVIE-6127130

PATIENT
  Sex: Female

DRUGS (2)
  1. VENCLEXTA [Suspect]
     Active Substance: VENETOCLAX
     Indication: Acute myeloid leukaemia
     Dosage: 100 MG
     Route: 048
     Dates: start: 20240807
  2. CYTARABINE [Concomitant]
     Active Substance: CYTARABINE
     Indication: Product used for unknown indication

REACTIONS (1)
  - Death [Fatal]
